FAERS Safety Report 23830969 (Version 4)
Quarter: 2024Q3

REPORT INFORMATION
  Report Type: Spontaneous
  Country: US (occurrence: US)
  Receive Date: 20240508
  Receipt Date: 20240701
  Transmission Date: 20241017
  Serious: No
  Sender: SANOFI AVENTIS
  Company Number: US-SA-SAC20240507000162

PATIENT
  Age: 42 Year
  Sex: Male

DRUGS (6)
  1. ALTUVIIIO [Suspect]
     Active Substance: EFANESOCTOCOG ALFA
     Indication: Factor VIII deficiency
     Dosage: 4320 U, QW PROPHYLACTICALLY
     Route: 042
     Dates: start: 20240403, end: 20240501
  2. ELOCTATE [Suspect]
     Active Substance: EFMOROCTOCOG ALFA
     Indication: Prophylaxis
     Dosage: 4320 U, BIW PROPHYLAXIS
     Dates: start: 202404
  3. ELOCTATE [Suspect]
     Active Substance: EFMOROCTOCOG ALFA
     Indication: Prophylaxis
     Dosage: 4320 U, BIW PROPHYLAXIS
     Dates: start: 202404
  4. ELOCTATE [Suspect]
     Active Substance: EFMOROCTOCOG ALFA
     Dosage: 2592 U, EVERY 48 HOURS AS NEEDED ON-DEMAND
  5. ELOCTATE [Suspect]
     Active Substance: EFMOROCTOCOG ALFA
     Dosage: 2592 U, EVERY 48 HOURS AS NEEDED ON-DEMAND
  6. CELEBREX [Concomitant]
     Active Substance: CELECOXIB
     Dosage: UNK

REACTIONS (8)
  - Infusion related reaction [Recovered/Resolved]
  - Dizziness [Recovered/Resolved]
  - Chest pain [Recovered/Resolved]
  - Infusion site urticaria [Recovered/Resolved]
  - Infusion site erythema [Recovered/Resolved]
  - Infusion site rash [Recovered/Resolved]
  - Infusion site swelling [Recovered/Resolved]
  - Intentional product misuse [Unknown]

NARRATIVE: CASE EVENT DATE: 20240401
